FAERS Safety Report 20752290 (Version 26)
Quarter: 2023Q4

REPORT INFORMATION
  Report Type: Report from Study
  Country: CN (occurrence: None)
  Receive Date: 20220426
  Receipt Date: 20231129
  Transmission Date: 20240110
  Serious: Yes (Hospitalization)
  Sender: FDA-Public Use
  Company Number: CN-ROCHE-3072722

PATIENT
  Age: 75 Year
  Sex: Male
  Weight: 63.8 kg

DRUGS (142)
  1. ATEZOLIZUMAB [Suspect]
     Active Substance: ATEZOLIZUMAB
     Indication: Lung adenocarcinoma
     Dosage: DOSE LAST STUDY DRUG ADMIN PRIOR AE/SAE- 1200 MG?START DATE OF MOST RECENT DOSE OF STUDY DRUG PRIOR
     Route: 041
     Dates: start: 20201111
  2. BEVACIZUMAB [Suspect]
     Active Substance: BEVACIZUMAB
     Indication: Lung adenocarcinoma
     Dosage: DATE OF MOST RECENT DOSE OF BEVACIZUMAB (1000 MG) PRIOR TO AE AND SAE 24/DEC/2021
     Route: 042
     Dates: start: 20201111
  3. CARBOPLATIN [Suspect]
     Active Substance: CARBOPLATIN
     Indication: Lung adenocarcinoma
     Route: 042
     Dates: start: 20201111
  4. CARBOPLATIN [Suspect]
     Active Substance: CARBOPLATIN
     Dosage: DATE OF MOST RECENT DOSE OF CARBOPLATIN PRIOR TO AE AND SAE: 19/JAN/2021
     Route: 042
  5. PEMETREXED [Suspect]
     Active Substance: PEMETREXED
     Indication: Lung adenocarcinoma
     Route: 042
     Dates: start: 20201111
  6. PEMETREXED [Suspect]
     Active Substance: PEMETREXED
     Dosage: START DATE OF MOST RECENT DOSE OF STUDY DRUG PRIOR TO AE ON 14/JAN/2022?START DATE OF MOST RECENT DO
     Route: 042
  7. OLMESARTAN MEDOXOMIL [Concomitant]
     Active Substance: OLMESARTAN MEDOXOMIL
     Indication: Proteinuria
     Dosage: MEDICATION INDICATION PROTEINURIA
     Dates: start: 20210708, end: 202302
  8. PHOSPHOLIPID [Concomitant]
     Active Substance: PHOSPHOLIPID
     Dates: start: 20220113, end: 20220114
  9. PHOSPHOLIPID [Concomitant]
     Active Substance: PHOSPHOLIPID
     Dates: start: 20220209, end: 20220210
  10. DEXAMETHASONE ACETATE [Concomitant]
     Active Substance: DEXAMETHASONE ACETATE
     Indication: Nausea
     Route: 048
     Dates: start: 20220115, end: 20220117
  11. DEXAMETHASONE ACETATE [Concomitant]
     Active Substance: DEXAMETHASONE ACETATE
     Indication: Vomiting
     Route: 048
     Dates: start: 20220325, end: 20220330
  12. DEXAMETHASONE ACETATE [Concomitant]
     Active Substance: DEXAMETHASONE ACETATE
     Route: 048
     Dates: start: 20220416, end: 20220418
  13. DEXAMETHASONE ACETATE [Concomitant]
     Active Substance: DEXAMETHASONE ACETATE
     Route: 048
     Dates: start: 20220508, end: 20220513
  14. DEXAMETHASONE ACETATE [Concomitant]
     Active Substance: DEXAMETHASONE ACETATE
     Route: 048
     Dates: start: 20220709, end: 20220714
  15. DEXAMETHASONE ACETATE [Concomitant]
     Active Substance: DEXAMETHASONE ACETATE
     Route: 048
     Dates: start: 20220730, end: 20220804
  16. DEXAMETHASONE ACETATE [Concomitant]
     Active Substance: DEXAMETHASONE ACETATE
     Route: 048
     Dates: start: 20220820, end: 20220825
  17. DEXAMETHASONE ACETATE [Concomitant]
     Active Substance: DEXAMETHASONE ACETATE
     Route: 048
     Dates: start: 20220910, end: 20220915
  18. DEXAMETHASONE ACETATE [Concomitant]
     Active Substance: DEXAMETHASONE ACETATE
     Route: 048
     Dates: start: 20221001, end: 20221006
  19. DEXAMETHASONE ACETATE [Concomitant]
     Active Substance: DEXAMETHASONE ACETATE
     Route: 048
     Dates: start: 20221026, end: 20221031
  20. DEXAMETHASONE ACETATE [Concomitant]
     Active Substance: DEXAMETHASONE ACETATE
     Route: 048
     Dates: start: 20220304, end: 20220306
  21. DEXAMETHASONE ACETATE [Concomitant]
     Active Substance: DEXAMETHASONE ACETATE
     Route: 048
     Dates: start: 20221116, end: 20221121
  22. DEXAMETHASONE ACETATE [Concomitant]
     Active Substance: DEXAMETHASONE ACETATE
     Route: 048
     Dates: start: 20221214, end: 20221219
  23. DEXAMETHASONE ACETATE [Concomitant]
     Active Substance: DEXAMETHASONE ACETATE
     Route: 048
     Dates: start: 20230106, end: 20230111
  24. DEXAMETHASONE ACETATE [Concomitant]
     Active Substance: DEXAMETHASONE ACETATE
     Route: 048
     Dates: start: 20230130, end: 20230204
  25. DEXAMETHASONE ACETATE [Concomitant]
     Active Substance: DEXAMETHASONE ACETATE
     Route: 048
     Dates: start: 20230222, end: 20230227
  26. DEXAMETHASONE ACETATE [Concomitant]
     Active Substance: DEXAMETHASONE ACETATE
     Route: 048
     Dates: start: 20230316, end: 20230321
  27. DEXAMETHASONE ACETATE [Concomitant]
     Active Substance: DEXAMETHASONE ACETATE
     Route: 048
     Dates: start: 20230408, end: 20230413
  28. DEXAMETHASONE ACETATE [Concomitant]
     Active Substance: DEXAMETHASONE ACETATE
     Route: 048
     Dates: start: 20230429, end: 20230504
  29. DEXAMETHASONE ACETATE [Concomitant]
     Active Substance: DEXAMETHASONE ACETATE
     Route: 048
     Dates: start: 20230520, end: 20230525
  30. DEXAMETHASONE ACETATE [Concomitant]
     Active Substance: DEXAMETHASONE ACETATE
     Route: 048
     Dates: start: 20230610, end: 20230615
  31. DEXAMETHASONE ACETATE [Concomitant]
     Active Substance: DEXAMETHASONE ACETATE
     Route: 048
     Dates: start: 20230701, end: 20230706
  32. DEXAMETHASONE ACETATE [Concomitant]
     Active Substance: DEXAMETHASONE ACETATE
     Route: 048
     Dates: start: 20230722, end: 20230727
  33. DEXAMETHASONE ACETATE [Concomitant]
     Active Substance: DEXAMETHASONE ACETATE
     Dates: start: 20230812, end: 20230817
  34. OMEPRAZOLE [Concomitant]
     Active Substance: OMEPRAZOLE
     Route: 048
     Dates: start: 20220115, end: 20220117
  35. OMEPRAZOLE [Concomitant]
     Active Substance: OMEPRAZOLE
     Dates: start: 20220910, end: 20220913
  36. OMEPRAZOLE [Concomitant]
     Active Substance: OMEPRAZOLE
     Dates: start: 20221001, end: 20221003
  37. OMEPRAZOLE [Concomitant]
     Active Substance: OMEPRAZOLE
     Dates: start: 20221026, end: 20221028
  38. OMEPRAZOLE [Concomitant]
     Active Substance: OMEPRAZOLE
     Dates: start: 20220304, end: 20220306
  39. OMEPRAZOLE [Concomitant]
     Active Substance: OMEPRAZOLE
     Dates: start: 20221116, end: 20221118
  40. OMEPRAZOLE [Concomitant]
     Active Substance: OMEPRAZOLE
     Dates: start: 20230222, end: 20230224
  41. OMEPRAZOLE [Concomitant]
     Active Substance: OMEPRAZOLE
     Dosage: NEXT DOSE ON: 29/APR/2023, 20/MAY/2023
     Dates: start: 20230408, end: 20230410
  42. OMEPRAZOLE [Concomitant]
     Active Substance: OMEPRAZOLE
     Dates: start: 20230610, end: 20230612
  43. OMEPRAZOLE [Concomitant]
     Active Substance: OMEPRAZOLE
     Dates: start: 20230701, end: 20230703
  44. OMEPRAZOLE [Concomitant]
     Active Substance: OMEPRAZOLE
     Dates: start: 20230722, end: 20230724
  45. OMEPRAZOLE [Concomitant]
     Active Substance: OMEPRAZOLE
     Dates: start: 20230812, end: 20230814
  46. OMEPRAZOLE [Concomitant]
     Active Substance: OMEPRAZOLE
     Dates: start: 20230905, end: 20230911
  47. FOLIC ACID [Concomitant]
     Active Substance: FOLIC ACID
     Indication: Prophylaxis
     Dates: start: 20220113, end: 20220119
  48. FOLIC ACID [Concomitant]
     Active Substance: FOLIC ACID
     Dates: start: 20220325, end: 20220328
  49. FOLIC ACID [Concomitant]
     Active Substance: FOLIC ACID
     Dates: start: 20220416, end: 20220419
  50. FOLIC ACID [Concomitant]
     Active Substance: FOLIC ACID
     Dates: start: 20220508, end: 20220511
  51. FOLIC ACID [Concomitant]
     Active Substance: FOLIC ACID
     Dates: start: 20220619, end: 20220622
  52. FOLIC ACID [Concomitant]
     Active Substance: FOLIC ACID
     Dates: start: 20220709, end: 20220712
  53. FOLIC ACID [Concomitant]
     Active Substance: FOLIC ACID
     Dates: start: 20220730, end: 20220802
  54. FOLIC ACID [Concomitant]
     Active Substance: FOLIC ACID
     Dates: start: 20220909, end: 20220913
  55. FOLIC ACID [Concomitant]
     Active Substance: FOLIC ACID
     Dates: start: 20220930, end: 20221006
  56. FOLIC ACID [Concomitant]
     Active Substance: FOLIC ACID
     Dates: start: 20221024, end: 20221029
  57. FOLIC ACID [Concomitant]
     Active Substance: FOLIC ACID
     Dates: start: 20220209, end: 20220215
  58. FOLIC ACID [Concomitant]
     Active Substance: FOLIC ACID
     Dates: start: 20220302, end: 20220302
  59. FOLIC ACID [Concomitant]
     Active Substance: FOLIC ACID
     Dates: start: 20221114, end: 20221119
  60. FOLIC ACID [Concomitant]
     Active Substance: FOLIC ACID
     Dates: start: 20221212, end: 20221219
  61. FOLIC ACID [Concomitant]
     Active Substance: FOLIC ACID
     Dates: start: 20230128, end: 20230129
  62. FOLIC ACID [Concomitant]
     Active Substance: FOLIC ACID
     Dates: start: 20230408, end: 20230411
  63. FOLIC ACID [Concomitant]
     Active Substance: FOLIC ACID
     Dates: start: 20230220, end: 20230225
  64. FOLIC ACID [Concomitant]
     Active Substance: FOLIC ACID
     Dates: start: 20230314, end: 20230319
  65. FOLIC ACID [Concomitant]
     Active Substance: FOLIC ACID
     Dates: start: 20221001, end: 20221004
  66. FOLIC ACID [Concomitant]
     Active Substance: FOLIC ACID
     Dates: start: 20230427, end: 20230503
  67. FOLIC ACID [Concomitant]
     Active Substance: FOLIC ACID
     Dates: start: 20230518, end: 20230524
  68. FOLIC ACID [Concomitant]
     Active Substance: FOLIC ACID
     Dates: start: 20230608, end: 20230614
  69. FOLIC ACID [Concomitant]
     Active Substance: FOLIC ACID
     Dates: start: 20230701, end: 20230704
  70. FOLIC ACID [Concomitant]
     Active Substance: FOLIC ACID
     Dates: start: 20230128, end: 20230129
  71. FOLIC ACID [Concomitant]
     Active Substance: FOLIC ACID
     Dates: start: 20230720, end: 20230726
  72. FOLIC ACID [Concomitant]
     Active Substance: FOLIC ACID
     Dates: start: 20230810, end: 20230815
  73. FOLIC ACID [Concomitant]
     Active Substance: FOLIC ACID
     Dates: start: 20230905, end: 20230908
  74. LOSARTAN POTASSIUM [Concomitant]
     Active Substance: LOSARTAN POTASSIUM
     Indication: Hypertension
     Dates: start: 20220225, end: 20230420
  75. FUROSEMIDE [Concomitant]
     Active Substance: FUROSEMIDE
     Dates: start: 20220311, end: 20220324
  76. SPIRONOLACTONE [Concomitant]
     Active Substance: SPIRONOLACTONE
     Dates: start: 20220311, end: 20220324
  77. METFORMIN HYDROCHLORIDE [Concomitant]
     Active Substance: METFORMIN HYDROCHLORIDE
     Dates: start: 2016
  78. CEFUROXIME [Concomitant]
     Active Substance: CEFUROXIME
     Route: 048
     Dates: start: 20220416, end: 20220422
  79. DEXAMETHASONE SODIUM PHOSPHATE [Concomitant]
     Active Substance: DEXAMETHASONE PHOSPHATE\DEXAMETHASONE SODIUM PHOSPHATE
     Indication: Vomiting
     Route: 042
     Dates: start: 20220909, end: 20220909
  80. DEXAMETHASONE SODIUM PHOSPHATE [Concomitant]
     Active Substance: DEXAMETHASONE PHOSPHATE\DEXAMETHASONE SODIUM PHOSPHATE
     Route: 042
     Dates: start: 20220930, end: 20220930
  81. DEXAMETHASONE SODIUM PHOSPHATE [Concomitant]
     Active Substance: DEXAMETHASONE PHOSPHATE\DEXAMETHASONE SODIUM PHOSPHATE
     Dosage: SUBSEQUENT ON 15-NOV-2022, 13-DEC-2022, 05-JAN-2023, 29-JAN-2023
     Route: 042
     Dates: start: 20221025, end: 20221025
  82. DEXAMETHASONE SODIUM PHOSPHATE [Concomitant]
     Active Substance: DEXAMETHASONE PHOSPHATE\DEXAMETHASONE SODIUM PHOSPHATE
     Route: 042
     Dates: start: 20230315, end: 20230315
  83. DEXAMETHASONE SODIUM PHOSPHATE [Concomitant]
     Active Substance: DEXAMETHASONE PHOSPHATE\DEXAMETHASONE SODIUM PHOSPHATE
     Route: 042
     Dates: start: 20230407, end: 20230407
  84. DEXAMETHASONE SODIUM PHOSPHATE [Concomitant]
     Active Substance: DEXAMETHASONE PHOSPHATE\DEXAMETHASONE SODIUM PHOSPHATE
     Route: 042
     Dates: start: 20230428, end: 20230428
  85. DEXAMETHASONE SODIUM PHOSPHATE [Concomitant]
     Active Substance: DEXAMETHASONE PHOSPHATE\DEXAMETHASONE SODIUM PHOSPHATE
     Route: 042
     Dates: start: 20230519, end: 20230519
  86. DEXAMETHASONE SODIUM PHOSPHATE [Concomitant]
     Active Substance: DEXAMETHASONE PHOSPHATE\DEXAMETHASONE SODIUM PHOSPHATE
     Route: 042
     Dates: start: 20230609, end: 20230609
  87. DEXAMETHASONE SODIUM PHOSPHATE [Concomitant]
     Active Substance: DEXAMETHASONE PHOSPHATE\DEXAMETHASONE SODIUM PHOSPHATE
     Dosage: NEXT DOSE ON: 21/FEB/2023
     Route: 042
     Dates: start: 20230630, end: 20230630
  88. DEXAMETHASONE SODIUM PHOSPHATE [Concomitant]
     Active Substance: DEXAMETHASONE PHOSPHATE\DEXAMETHASONE SODIUM PHOSPHATE
     Route: 042
     Dates: start: 20230720, end: 20230720
  89. DEXAMETHASONE SODIUM PHOSPHATE [Concomitant]
     Active Substance: DEXAMETHASONE PHOSPHATE\DEXAMETHASONE SODIUM PHOSPHATE
     Route: 042
     Dates: start: 20230811, end: 20230811
  90. DEXAMETHASONE SODIUM PHOSPHATE [Concomitant]
     Active Substance: DEXAMETHASONE PHOSPHATE\DEXAMETHASONE SODIUM PHOSPHATE
     Route: 042
     Dates: start: 20230926, end: 20230926
  91. DEXAMETHASONE SODIUM PHOSPHATE [Concomitant]
     Active Substance: DEXAMETHASONE PHOSPHATE\DEXAMETHASONE SODIUM PHOSPHATE
     Dosage: 5UG
     Route: 042
     Dates: start: 20231017, end: 20231017
  92. OMEPRAZOLE SODIUM [Concomitant]
     Active Substance: OMEPRAZOLE SODIUM
     Dates: start: 20220909, end: 20220909
  93. OMEPRAZOLE SODIUM [Concomitant]
     Active Substance: OMEPRAZOLE SODIUM
     Dates: start: 20220930, end: 20220930
  94. OMEPRAZOLE SODIUM [Concomitant]
     Active Substance: OMEPRAZOLE SODIUM
     Dates: start: 20221025, end: 20221025
  95. OMEPRAZOLE SODIUM [Concomitant]
     Active Substance: OMEPRAZOLE SODIUM
     Dates: start: 20221115, end: 20221115
  96. OMEPRAZOLE SODIUM [Concomitant]
     Active Substance: OMEPRAZOLE SODIUM
     Dates: start: 20221213, end: 20221213
  97. OMEPRAZOLE SODIUM [Concomitant]
     Active Substance: OMEPRAZOLE SODIUM
     Dates: start: 20230105, end: 20230105
  98. OMEPRAZOLE SODIUM [Concomitant]
     Active Substance: OMEPRAZOLE SODIUM
     Dates: start: 20230129, end: 20230129
  99. OMEPRAZOLE SODIUM [Concomitant]
     Active Substance: OMEPRAZOLE SODIUM
     Dates: start: 20230221, end: 20230221
  100. OMEPRAZOLE SODIUM [Concomitant]
     Active Substance: OMEPRAZOLE SODIUM
     Dates: start: 20230315, end: 20230315
  101. OMEPRAZOLE SODIUM [Concomitant]
     Active Substance: OMEPRAZOLE SODIUM
     Dates: start: 20230316, end: 20230318
  102. OMEPRAZOLE SODIUM [Concomitant]
     Active Substance: OMEPRAZOLE SODIUM
     Dates: start: 20230407, end: 20230407
  103. OMEPRAZOLE SODIUM [Concomitant]
     Active Substance: OMEPRAZOLE SODIUM
     Dosage: NEXT DOSE ON: 19/MAY/2023, 09/JUN/2023, 30/JUN/2023, 20/JUL/2023
     Dates: start: 20230428, end: 20230428
  104. TROPISETRON HYDROCHLORIDE [Concomitant]
     Active Substance: TROPISETRON HYDROCHLORIDE
     Indication: Vomiting
     Dates: start: 20220909, end: 20220909
  105. TROPISETRON HYDROCHLORIDE [Concomitant]
     Active Substance: TROPISETRON HYDROCHLORIDE
     Dates: start: 20220930, end: 20220930
  106. TROPISETRON HYDROCHLORIDE [Concomitant]
     Active Substance: TROPISETRON HYDROCHLORIDE
     Dates: start: 20221025, end: 20221025
  107. TROPISETRON HYDROCHLORIDE [Concomitant]
     Active Substance: TROPISETRON HYDROCHLORIDE
     Dates: start: 20221115, end: 20221115
  108. TROPISETRON HYDROCHLORIDE [Concomitant]
     Active Substance: TROPISETRON HYDROCHLORIDE
     Dates: start: 20221213, end: 20221213
  109. TROPISETRON HYDROCHLORIDE [Concomitant]
     Active Substance: TROPISETRON HYDROCHLORIDE
     Dates: start: 20230105, end: 20230105
  110. TROPISETRON HYDROCHLORIDE [Concomitant]
     Active Substance: TROPISETRON HYDROCHLORIDE
     Dates: start: 20230129, end: 20230129
  111. TROPISETRON HYDROCHLORIDE [Concomitant]
     Active Substance: TROPISETRON HYDROCHLORIDE
     Dates: start: 20230315, end: 20230315
  112. TROPISETRON HYDROCHLORIDE [Concomitant]
     Active Substance: TROPISETRON HYDROCHLORIDE
     Dosage: NEXT DOSE ON: 28/APR/2023, 19/MAY/2023, 09/JUN/2023, 30/JUN/2023, 21/FEB/2023
     Dates: start: 20230407, end: 20230407
  113. APREPITANT [Concomitant]
     Active Substance: APREPITANT
     Indication: Vomiting
     Dates: start: 20220910, end: 20220910
  114. APREPITANT [Concomitant]
     Active Substance: APREPITANT
     Dates: start: 20220912, end: 20220913
  115. APREPITANT [Concomitant]
     Active Substance: APREPITANT
     Dates: start: 20221001, end: 20221003
  116. ONDANSETRON HYDROCHLORIDE [Concomitant]
     Active Substance: ONDANSETRON HYDROCHLORIDE
     Dates: start: 20221001, end: 20221006
  117. ONDANSETRON HYDROCHLORIDE [Concomitant]
     Active Substance: ONDANSETRON HYDROCHLORIDE
     Dates: start: 20230812, end: 20230817
  118. ONDANSETRON HYDROCHLORIDE [Concomitant]
     Active Substance: ONDANSETRON HYDROCHLORIDE
     Dates: start: 20230905, end: 20230910
  119. ONDANSETRON HYDROCHLORIDE [Concomitant]
     Active Substance: ONDANSETRON HYDROCHLORIDE
     Dates: start: 20231017, end: 20231023
  120. VITAMIN B12 [Concomitant]
     Active Substance: CYANOCOBALAMIN
     Indication: Vitamin supplementation
     Dates: start: 20220210, end: 20220210
  121. VITAMIN B12 [Concomitant]
     Active Substance: CYANOCOBALAMIN
     Dates: start: 20220415, end: 20220415
  122. VITAMIN B12 [Concomitant]
     Active Substance: CYANOCOBALAMIN
     Dates: start: 20220819, end: 20220819
  123. VITAMIN B12 [Concomitant]
     Active Substance: CYANOCOBALAMIN
     Dates: start: 20220618, end: 20220618
  124. VITAMIN B12 [Concomitant]
     Active Substance: CYANOCOBALAMIN
     Dates: start: 20230315, end: 20230315
  125. VITAMIN B12 [Concomitant]
     Active Substance: CYANOCOBALAMIN
     Dates: start: 20230629, end: 20230629
  126. VITAMIN B12 [Concomitant]
     Active Substance: CYANOCOBALAMIN
     Dates: start: 20230519, end: 20230519
  127. VITAMIN B12 [Concomitant]
     Active Substance: CYANOCOBALAMIN
     Dates: start: 20230811, end: 20230811
  128. VITAMIN B12 [Concomitant]
     Active Substance: CYANOCOBALAMIN
     Dates: start: 20230926, end: 20230926
  129. SODIUM CHLORIDE [Concomitant]
     Active Substance: SODIUM CHLORIDE
     Dates: start: 20230221, end: 20230221
  130. SODIUM CHLORIDE [Concomitant]
     Active Substance: SODIUM CHLORIDE
     Dates: start: 20230720, end: 20230720
  131. DEXAMETHASONE SODIUM PHOSPHATE [Concomitant]
     Active Substance: DEXAMETHASONE PHOSPHATE\DEXAMETHASONE SODIUM PHOSPHATE
     Indication: Vomiting
     Route: 042
     Dates: start: 20230221, end: 20230221
  132. DEXAMETHASONE SODIUM PHOSPHATE [Concomitant]
     Active Substance: DEXAMETHASONE PHOSPHATE\DEXAMETHASONE SODIUM PHOSPHATE
     Dosage: NEXT DOSE ON: 25/OCT/2022, 15/NOV/2022, 13/DEC/2022, 05/JAN/2023, 29/JAN/2023
     Route: 042
     Dates: start: 20220930, end: 20220930
  133. IRBESARTAN AND HYDROCHLOROTHIAZIDE [Concomitant]
     Active Substance: HYDROCHLOROTHIAZIDE\IRBESARTAN
     Indication: Hypertension
     Dates: start: 20230421
  134. POTASSIUM CHLORIDE [Concomitant]
     Active Substance: POTASSIUM CHLORIDE
     Dates: start: 20230720, end: 20230720
  135. ESOMEPRAZOLE SODIUM [Concomitant]
     Active Substance: ESOMEPRAZOLE SODIUM
     Dates: start: 20230811, end: 20230811
  136. EMPAGLIFLOZIN [Concomitant]
     Active Substance: EMPAGLIFLOZIN
     Dates: start: 20230731
  137. GLICLAZIDE [Concomitant]
     Active Substance: GLICLAZIDE
     Dates: start: 20230731
  138. POTASSIUM CHLORIDE [Concomitant]
     Active Substance: POTASSIUM CHLORIDE
     Dates: start: 20230808
  139. METHYLPREDNISOLONE SODIUM SUCCINATE [Concomitant]
     Active Substance: METHYLPREDNISOLONE SODIUM SUCCINATE
     Indication: Pneumonia
     Route: 042
     Dates: start: 20230901, end: 20230902
  140. METHYLPREDNISOLONE SODIUM SUCCINATE [Concomitant]
     Active Substance: METHYLPREDNISOLONE SODIUM SUCCINATE
     Route: 042
     Dates: start: 20230903, end: 20230904
  141. METHYLPREDNISOLONE [Concomitant]
     Active Substance: METHYLPREDNISOLONE
     Indication: Interstitial lung disease
     Route: 048
     Dates: start: 20230905, end: 20230911
  142. ACETYLCYSTEINE [Concomitant]
     Active Substance: ACETYLCYSTEINE
     Dates: start: 20230901, end: 20230904

REACTIONS (1)
  - Cellulitis [Not Recovered/Not Resolved]

NARRATIVE: CASE EVENT DATE: 20220205
